FAERS Safety Report 6985792-X (Version None)
Quarter: 2010Q3

REPORT INFORMATION
  Report Type: 
  Country: None (occurrence: None)
  Receive Date: 20100915
  Receipt Date: 20100909
  Transmission Date: 20110219
  Serious: Yes (Hospitalization)
  Sender: FDA-Public Use
  Company Number: FR-WYE-G06644110

PATIENT
  Sex: Male

DRUGS (1)
  1. RHINADVIL [Suspect]
     Indication: NASOPHARYNGITIS
     Route: 048
     Dates: start: 20100805, end: 20100805

REACTIONS (2)
  - RENAL FAILURE ACUTE [None]
  - RENAL TUBULAR NECROSIS [None]
